FAERS Safety Report 7070006-5 (Version None)
Quarter: 2010Q4

REPORT INFORMATION
  Report Type: 
  Country: None (occurrence: None)
  Receive Date: 20101028
  Receipt Date: 20100823
  Transmission Date: 20110411
  Serious: No
  Sender: FDA-Public Use
  Company Number: US-WYE-H17124010

PATIENT
  Age: 66 Year
  Sex: Male
  Weight: 83.99 kg

DRUGS (5)
  1. ADVIL [Suspect]
     Indication: PAIN
     Route: 048
     Dates: start: 20100822
  2. ASCORBIC ACID/ERGOCALCIFEROL/FOLIC ACID/NICOTINAMIDE/PANTHENOL/RETINOL [Concomitant]
  3. ACETYLSALICYLIC ACID [Concomitant]
  4. SYNTHROID [Concomitant]
  5. CYMBALTA [Concomitant]

REACTIONS (2)
  - FATIGUE [None]
  - SOMNOLENCE [None]
